FAERS Safety Report 9049306 (Version 1)
Quarter: 2012Q4

REPORT INFORMATION
  Report Type: Spontaneous
  Country: US (occurrence: None)
  Receive Date: 20120906
  Receipt Date: 20120906
  Transmission Date: 20130627
  Serious: Yes (Other)
  Sender: FDA-Public Use
  Company Number: M-12-024

PATIENT
  Sex: Female

DRUGS (1)
  1. URSODIOL [Suspect]
     Indication: BILIARY CIRRHOSIS PRIMARY
     Route: 048

REACTIONS (3)
  - Pruritus [None]
  - Nausea [None]
  - Liver function test abnormal [None]
